FAERS Safety Report 9380468 (Version 1)
Quarter: 2013Q2

REPORT INFORMATION
  Report Type: Spontaneous
  Country: FR (occurrence: None)
  Receive Date: 20130628
  Receipt Date: 20130628
  Transmission Date: 20140414
  Serious: Yes (Other)
  Sender: FDA-Public Use
  Company Number: 2013P1009922

PATIENT
  Age: 12 Day
  Sex: Male
  Weight: 2.1 kg

DRUGS (1)
  1. METOPROLOL [Suspect]
     Indication: SUPRAVENTRICULAR TACHYARRHYTHMIA

REACTIONS (4)
  - Maternal drugs affecting foetus [None]
  - Atrial fibrillation [None]
  - Tachycardia [None]
  - Premature baby [None]
